FAERS Safety Report 5249862-9 (Version None)
Quarter: 2007Q1

REPORT INFORMATION
  Report Type: 
  Country: None (occurrence: None)
  Receive Date: 20070228
  Receipt Date: 20070115
  Transmission Date: 20070707
  Serious: Yes (Other)
  Sender: FDA-Public Use
  Company Number: FRWYE164615JAN07

PATIENT
  Age: 51 Year
  Sex: Female

DRUGS (2)
  1. ENBREL [Suspect]
     Indication: RHEUMATOID ARTHRITIS
     Dosage: UNKNOWN
     Route: 058
  2. NOVATREX [Suspect]
     Indication: RHEUMATOID ARTHRITIS
     Dosage: 12.5 MG TOTAL WEEKLY
     Route: 048

REACTIONS (3)
  - BLAST CELLS PRESENT [None]
  - EOSINOPHIL COUNT INCREASED [None]
  - GASTROENTERITIS [None]
